FAERS Safety Report 7456957-8 (Version None)
Quarter: 2011Q2

REPORT INFORMATION
  Report Type: 
  Country: None (occurrence: None)
  Receive Date: 20110504
  Receipt Date: 20110429
  Transmission Date: 20111010
  Serious: Yes (Other)
  Sender: FDA-Public Use
  Company Number: PR-BAYER-2011-021648

PATIENT
  Sex: Female

DRUGS (4)
  1. BETASERON [Suspect]
     Dosage: UNK
     Dates: start: 20070827, end: 20091231
  2. BETASERON [Suspect]
     Dosage: 2 MIU, QOD
     Route: 058
     Dates: start: 20110115
  3. BETASERON [Suspect]
     Dosage: 8 MIU, QOD
     Route: 058
  4. BETASERON [Suspect]
     Indication: MULTIPLE SCLEROSIS
     Dosage: UNK
     Dates: start: 20070615, end: 20070713

REACTIONS (2)
  - DELIVERY [None]
  - NO ADVERSE EVENT [None]
